FAERS Safety Report 6183363-9 (Version None)
Quarter: 2009Q2

REPORT INFORMATION
  Report Type: 
  Country: None (occurrence: None)
  Receive Date: 20090506
  Receipt Date: 20090422
  Transmission Date: 20091009
  Serious: Yes (Hospitalization)
  Sender: FDA-Public Use
  Company Number: MOZO-1000196

PATIENT
  Age: 39 Year
  Sex: Female
  Weight: 89 kg

DRUGS (2)
  1. PLERIXAFOR (PLERIXAFOR) SOLUTION FOR INJECTION [Suspect]
     Indication: HAEMATOPOIETIC STEM CELL MOBILISATION
     Dosage: 21 MG, QD; SUBCUTANEOUS
     Route: 058
     Dates: start: 20090420, end: 20090420
  2. G-CSF (GRANULOCYTE COLONY STIMULATING FACTOR) [Concomitant]

REACTIONS (1)
  - HYPERSENSITIVITY [None]
